FAERS Safety Report 19938364 (Version 3)
Quarter: 2023Q4

REPORT INFORMATION
  Report Type: Spontaneous
  Country: US (occurrence: US)
  Receive Date: 20211011
  Receipt Date: 20231012
  Transmission Date: 20240110
  Serious: No
  Sender: FDA-Public Use
  Company Number: US-SA-SAC20211007000090

PATIENT
  Age: 36 Year
  Sex: Female
  Weight: 73.4 kg

DRUGS (2)
  1. DUPIXENT [Suspect]
     Active Substance: DUPILUMAB
     Indication: Dermatitis atopic
     Dosage: 300 MG, QOW
     Route: 058
     Dates: start: 202104, end: 202108
  2. DUPIXENT [Suspect]
     Active Substance: DUPILUMAB
     Dosage: 300 MG, QOW
     Route: 058
     Dates: end: 202308

REACTIONS (5)
  - Skin haemorrhage [Unknown]
  - Pruritus [Unknown]
  - Skin exfoliation [Unknown]
  - Product dose omission issue [Unknown]
  - Rash [Unknown]

NARRATIVE: CASE EVENT DATE: 20210101
